FAERS Safety Report 7677270-X (Version None)
Quarter: 2011Q3

REPORT INFORMATION
  Report Type: 
  Country: None (occurrence: None)
  Receive Date: 20110811
  Receipt Date: 20110808
  Transmission Date: 20111222
  Serious: Yes (Other)
  Sender: FDA-Public Use
  Company Number: US-PFIZER INC-2011180201

PATIENT
  Sex: Male

DRUGS (6)
  1. LYRICA [Suspect]
     Indication: ABDOMINAL PAIN
     Dosage: 75 MG, 2X/DAY
     Route: 048
     Dates: start: 20110408, end: 20110501
  2. LYRICA [Suspect]
     Indication: TOOTHACHE
     Dosage: 200 MG, 2X/DAY
     Route: 048
     Dates: start: 20110501, end: 20110101
  3. LYRICA [Suspect]
     Dosage: 75 MG, 2X/DAY
     Route: 048
     Dates: start: 20110101, end: 20110601
  4. NEURONTIN [Suspect]
     Indication: GASTROINTESTINAL DISORDER
     Dosage: 400MG TOTAL DOSE IN TWO WEEKS
     Route: 048
     Dates: start: 20110303, end: 20110318
  5. LYRICA [Suspect]
     Indication: ADVERSE EVENT
     Dosage: 150 MG, 2X/DAY
     Route: 048
     Dates: start: 20110101, end: 20110101
  6. LYRICA [Suspect]
     Dosage: 75 MG, 2X/DAY
     Route: 048
     Dates: start: 20110101

REACTIONS (8)
  - MUSCLE TWITCHING [None]
  - CHEST DISCOMFORT [None]
  - DRUG INEFFECTIVE [None]
  - PARAESTHESIA [None]
  - SWELLING [None]
  - ERYTHEMA [None]
  - HYPOAESTHESIA [None]
  - SKIN BURNING SENSATION [None]
